FAERS Safety Report 5923588-8 (Version None)
Quarter: 2008Q4

REPORT INFORMATION
  Report Type: 
  Country: None (occurrence: None)
  Receive Date: 20081015
  Receipt Date: 20081001
  Transmission Date: 20090506
  Serious: Yes (Other)
  Sender: FDA-Public Use
  Company Number: 2008-176447-NL

PATIENT
  Age: 46 Year
  Sex: Female

DRUGS (3)
  1. NUVARING [Suspect]
     Indication: HORMONE REPLACEMENT THERAPY
     Dosage: 30 DAYS CONTINUOUSLY
     Dates: start: 20080302
  2. VITAMIN B-12 [Concomitant]
  3. FISH OIL [Concomitant]

REACTIONS (5)
  - BURNING SENSATION [None]
  - ERYTHEMA [None]
  - FLUSHING [None]
  - MYELODYSPLASTIC SYNDROME [None]
  - SKIN DISCOLOURATION [None]
